FAERS Safety Report 9958390 (Version 2)
Quarter: 2016Q2

REPORT INFORMATION
  Report Type: Report from Study
  Country: US (occurrence: US)
  Receive Date: 20140305
  Receipt Date: 20160428
  Transmission Date: 20160815
  Serious: Yes (Other)
  Sender: FDA-Public Use
  Company Number: US-ROCHE-1345802

PATIENT
  Sex: Female

DRUGS (12)
  1. FISH OIL [Concomitant]
     Active Substance: FISH OIL
  2. ASA [Concomitant]
     Active Substance: ASPIRIN
     Dosage: 81
     Route: 065
  3. AMBIEN [Concomitant]
     Active Substance: ZOLPIDEM TARTRATE
  4. FEMARA [Concomitant]
     Active Substance: LETROZOLE
  5. PROPARACAINE [Concomitant]
     Active Substance: PROPARACAINE
     Route: 061
  6. LIDOCAINE. [Concomitant]
     Active Substance: LIDOCAINE
     Route: 061
  7. VIGAMOX [Concomitant]
     Active Substance: MOXIFLOXACIN HYDROCHLORIDE
  8. AVASTIN [Suspect]
     Active Substance: BEVACIZUMAB
     Indication: NEOVASCULAR AGE-RELATED MACULAR DEGENERATION
     Dosage: OS (LEFT EYE)
     Route: 065
  9. POVIDONE-IODINE. [Concomitant]
     Active Substance: POVIDONE-IODINE
     Route: 065
  10. AVAPRO [Concomitant]
     Active Substance: IRBESARTAN
  11. IBUPROFEN. [Concomitant]
     Active Substance: IBUPROFEN
  12. LUCENTIS [Suspect]
     Active Substance: RANIBIZUMAB
     Indication: NEOVASCULAR AGE-RELATED MACULAR DEGENERATION
     Dosage: OD (RIGHT EYE)
     Route: 050
     Dates: start: 20110623

REACTIONS (7)
  - Retinal oedema [Unknown]
  - Detachment of retinal pigment epithelium [Unknown]
  - Off label use [Unknown]
  - Choroidal neovascularisation [Unknown]
  - Subretinal fluid [Unknown]
  - Metamorphopsia [Unknown]
  - Visual acuity reduced [Unknown]
